FAERS Safety Report 15590736 (Version 2)
Quarter: 2018Q4

REPORT INFORMATION
  Report Type: Spontaneous
  Country: AR (occurrence: AR)
  Receive Date: 20181106
  Receipt Date: 20181115
  Transmission Date: 20190205
  Serious: Yes (Other)
  Sender: FDA-Public Use
  Company Number: AR-PFIZER INC-2018449640

PATIENT
  Age: 66 Year
  Sex: Female

DRUGS (1)
  1. IBRANCE [Suspect]
     Active Substance: PALBOCICLIB
     Indication: BREAST CANCER METASTATIC
     Dosage: 125 MG, CYCLIC (DAILY, 3X1, SCHEME)
     Dates: start: 20171227, end: 20180930

REACTIONS (3)
  - Product use issue [Unknown]
  - Feeding disorder [Unknown]
  - Oesophageal obstruction [Not Recovered/Not Resolved]

NARRATIVE: CASE EVENT DATE: 2018
